FAERS Safety Report 4534309-8 (Version None)
Quarter: 2004Q4

REPORT INFORMATION
  Report Type: 
  Country: None (occurrence: None)
  Receive Date: 20041214
  Receipt Date: 20040819
  Transmission Date: 20050328
  Serious: No
  Sender: FDA-Public Use
  Company Number: 2004228070US

PATIENT
  Sex: Female
  Weight: 61.7 kg

DRUGS (3)
  1. BEXTRA [Suspect]
     Dates: end: 20040818
  2. HYDROCHLOROTHIAZIDE [Concomitant]
  3. LISINOPRIL [Concomitant]

REACTIONS (4)
  - CONSTIPATION [None]
  - DRUG INEFFECTIVE [None]
  - HYPERHIDROSIS [None]
  - TEMPERATURE INTOLERANCE [None]
